FAERS Safety Report 5298988-2 (Version None)
Quarter: 2007Q2

REPORT INFORMATION
  Report Type: 
  Country: None (occurrence: None)
  Receive Date: 20070412
  Receipt Date: 20070412
  Transmission Date: 20071010
  Serious: Yes (Other)
  Sender: FDA-Public Use
  Company Number: None

PATIENT
  Age: 45 Year
  Sex: Male
  Weight: 95.2554 kg

DRUGS (3)
  1. RISPERDAL [Suspect]
     Indication: SCHIZOPHRENIA
     Dosage: 12MG DAILY PO
     Route: 048
     Dates: start: 20030814, end: 20061130
  2. LITHIUM CARBONATE [Concomitant]
  3. CHLORPROMAZINE [Concomitant]

REACTIONS (3)
  - BLOOD GLUCOSE INCREASED [None]
  - ILL-DEFINED DISORDER [None]
  - TREATMENT NONCOMPLIANCE [None]
